FAERS Safety Report 25025568 (Version 5)
Quarter: 2025Q2

REPORT INFORMATION
  Report Type: Spontaneous
  Country: JP (occurrence: JP)
  Receive Date: 20250228
  Receipt Date: 20250605
  Transmission Date: 20250717
  Serious: Yes (Other)
  Sender: ASTELLAS
  Company Number: JP-ASTELLAS-2025-AER-010628

PATIENT
  Sex: Female

DRUGS (5)
  1. MIRABEGRON [Suspect]
     Active Substance: MIRABEGRON
     Indication: Hypertonic bladder
     Dosage: ONCE IN THE MORNING (HAD SOMETIMES TAKEN THE DRUG AND SOMETIMES NOT)
     Route: 048
  2. Fosmicin 500 [Concomitant]
     Indication: Cystitis haemorrhagic
     Route: 048
  3. VIBEGRON [Concomitant]
     Active Substance: VIBEGRON
     Indication: Product used for unknown indication
     Route: 048
  4. Tsumura Choreito [Concomitant]
     Indication: Product used for unknown indication
     Route: 048
  5. TERIPARATIDE ACETATE [Concomitant]
     Active Substance: TERIPARATIDE ACETATE
     Indication: Osteoporosis
     Route: 065

REACTIONS (11)
  - Cystitis haemorrhagic [Not Recovered/Not Resolved]
  - Decreased activity [Unknown]
  - Urinary incontinence [Recovering/Resolving]
  - Physical deconditioning [Unknown]
  - Nocturia [Unknown]
  - Sense of oppression [Unknown]
  - Emotional distress [Unknown]
  - Hypertonic bladder [Unknown]
  - Feeling abnormal [Unknown]
  - Intentional dose omission [Unknown]
  - Drug ineffective [Unknown]
